FAERS Safety Report 17227644 (Version 1)
Quarter: 2020Q1

REPORT INFORMATION
  Report Type: Report from Study
  Country: IT (occurrence: IT)
  Receive Date: 20200103
  Receipt Date: 20200103
  Transmission Date: 20200409
  Serious: Yes (Other)
  Sender: FDA-Public Use
  Company Number: IT-TEVA-2019-IT-1160421

PATIENT
  Sex: Male

DRUGS (8)
  1. PACLITAXEL. [Suspect]
     Active Substance: PACLITAXEL
     Dosage: 130 MG, UNKNOWN
     Route: 042
     Dates: start: 20180216
  2. RAMUCIRUMAB [Suspect]
     Active Substance: RAMUCIRUMAB
     Indication: GASTRIC CANCER
     Dosage: 400 MG, UNKNOWN
     Route: 042
     Dates: start: 20180412
  3. RAMUCIRUMAB [Suspect]
     Active Substance: RAMUCIRUMAB
     Dosage: UNK, UNKNOWN
     Route: 042
  4. PACLITAXEL. [Suspect]
     Active Substance: PACLITAXEL
     Indication: GASTRIC CANCER
     Dosage: 100 MG, UNKNOWN
     Route: 042
     Dates: start: 20180522
  5. RAMUCIRUMAB [Suspect]
     Active Substance: RAMUCIRUMAB
     Dosage: 400 MG, UNKNOWN
     Route: 042
     Dates: start: 20180308
  6. PACLITAXEL. [Suspect]
     Active Substance: PACLITAXEL
     Dosage: 130 MG, UNKNOWN
     Route: 042
     Dates: start: 20180515
  7. PACLITAXEL. [Suspect]
     Active Substance: PACLITAXEL
     Dosage: 95 MG, UNKNOWN
     Route: 042
     Dates: start: 20180529
  8. PACLITAXEL. [Suspect]
     Active Substance: PACLITAXEL
     Dosage: 95 MG, UNKNOWN
     Route: 042
     Dates: start: 20180419

REACTIONS (4)
  - Anaemia [Recovered/Resolved]
  - Anaemia [Not Recovered/Not Resolved]
  - Neutropenia [Recovered/Resolved]
  - Vascular device infection [Recovered/Resolved]

NARRATIVE: CASE EVENT DATE: 20180315
